FAERS Safety Report 6932583-1 (Version None)
Quarter: 2010Q3

REPORT INFORMATION
  Report Type: 
  Country: None (occurrence: None)
  Receive Date: 20100819
  Receipt Date: 20100818
  Transmission Date: 20110219
  Serious: Yes (Hospitalization)
  Sender: FDA-Public Use
  Company Number: US-BRISTOL-MYERS SQUIBB COMPANY-14751648

PATIENT
  Age: 76 Year
  Sex: Female

DRUGS (3)
  1. ERBITUX [Suspect]
     Indication: HEAD AND NECK CANCER
     Dosage: LAST DOSE:28JUL09 THERAPY DATE:9AUG09
     Route: 042
     Dates: start: 20090609
  2. ABRAXANE [Suspect]
     Indication: HEAD AND NECK CANCER
     Dosage: LAST DOSE ON 7JUL09 THERAPY DATE: 9AUG09
     Dates: start: 20090609
  3. RADIOTHERAPY [Suspect]
     Indication: HEAD AND NECK CANCER

REACTIONS (3)
  - CEREBRAL ISCHAEMIA [None]
  - FATIGUE [None]
  - INFECTION [None]
